FAERS Safety Report 4498044-7 (Version None)
Quarter: 2004Q4

REPORT INFORMATION
  Report Type: 
  Country: None (occurrence: None)
  Receive Date: 20041109
  Receipt Date: 20041109
  Transmission Date: 20050328
  Serious: Yes (Death)
  Sender: FDA-Public Use
  Company Number: None

PATIENT
  Sex: Male
  Weight: 78.4723 kg

DRUGS (1)
  1. ADALIMUMAB  40 MG  ABBOTT [Suspect]
     Indication: RHEUMATOID ARTHRITIS
     Dosage: 40 MG  EVERY 2 WEEKS  SUBCUTANEOUS
     Route: 057
     Dates: start: 20030131, end: 20040709

REACTIONS (1)
  - HEPATIC FAILURE [None]
